FAERS Safety Report 10159935 (Version 1)
Quarter: 2014Q2

REPORT INFORMATION
  Report Type: Spontaneous
  Country: US (occurrence: US)
  Receive Date: 20140508
  Receipt Date: 20140508
  Transmission Date: 20141212
  Serious: No
  Sender: FDA-Public Use
  Company Number: US-GLAXOSMITHKLINE-A1042574A

PATIENT
  Age: 65 Year
  Sex: Male

DRUGS (2)
  1. TYKERB [Suspect]
     Indication: THYROID CANCER
     Dosage: 1250MG PER DAY
     Route: 048
     Dates: start: 20130814, end: 20130830
  2. VEMURAFENIB [Suspect]
     Indication: THYROID CANCER
     Route: 048
     Dates: start: 20130814, end: 20130830

REACTIONS (9)
  - Ill-defined disorder [Unknown]
  - Insomnia [Unknown]
  - Muscle swelling [Unknown]
  - Joint swelling [Unknown]
  - Pain [Unknown]
  - Mood swings [Unknown]
  - Peripheral swelling [Unknown]
  - Productive cough [Unknown]
  - Breath odour [Unknown]
